FAERS Safety Report 4919265-2 (Version None)
Quarter: 2006Q1

REPORT INFORMATION
  Report Type: 
  Country: None (occurrence: None)
  Receive Date: 20060215
  Receipt Date: 20060203
  Transmission Date: 20060701
  Serious: Yes (Hospitalization)
  Sender: FDA-Public Use
  Company Number: 2006PV007371

PATIENT
  Age: 65 Year
  Sex: Female
  Weight: 75.7507 kg

DRUGS (11)
  1. BYETTA [Suspect]
     Indication: DIABETES MELLITUS NON-INSULIN-DEPENDENT
     Dosage: SC
     Route: 058
     Dates: start: 20051205, end: 20051228
  2. VYTORIN [Suspect]
     Indication: HYPERLIPIDAEMIA
     Dates: start: 20051201, end: 20051228
  3. AVAPRO [Suspect]
     Indication: HYPERTENSION
     Dosage: 150 MG; BID; PO
     Route: 048
     Dates: end: 20051228
  4. GLUCOPHAGE [Concomitant]
  5. MOTRIN [Concomitant]
  6. ACTOS [Concomitant]
  7. AMARYL [Concomitant]
  8. TYLENOL (CAPLET) [Concomitant]
  9. METFORMIN [Concomitant]
  10. STEROID INJECTIONS [Concomitant]
  11. ALEVE [Concomitant]

REACTIONS (7)
  - ADRENAL ADENOMA [None]
  - ARTHRALGIA [None]
  - BLOOD GLUCOSE INCREASED [None]
  - CHEST PAIN [None]
  - GLYCOSYLATED HAEMOGLOBIN INCREASED [None]
  - PANCREATIC MASS [None]
  - PANCREATITIS ACUTE [None]
